FAERS Safety Report 4673054-5 (Version None)
Quarter: 2005Q2

REPORT INFORMATION
  Report Type: 
  Country: None (occurrence: None)
  Receive Date: 20050523
  Receipt Date: 20001117
  Transmission Date: 20051028
  Serious: Yes (Hospitalization)
  Sender: FDA-Public Use
  Company Number: 2000-00554

PATIENT
  Age: 46 Year
  Sex: Male
  Weight: 57.5 kg

DRUGS (1)
  1. DAUNOXOME [Suspect]
     Indication: KAPOSI'S SARCOMA
     Dosage: INTRAVENOUS
     Route: 042
     Dates: start: 19950713, end: 19950926

REACTIONS (1)
  - PLEURAL EFFUSION [None]
